FAERS Safety Report 9952354 (Version 1)
Quarter: 2014Q1

REPORT INFORMATION
  Report Type: Report from Study
  Country: US (occurrence: US)
  Receive Date: 20140304
  Receipt Date: 20140304
  Transmission Date: 20141002
  Serious: Yes (Hospitalization, Other)
  Sender: FDA-Public Use
  Company Number: US-ABBVIE-14P-163-1206537-00

PATIENT
  Age: 40 Year
  Sex: Male
  Weight: 122.13 kg

DRUGS (9)
  1. ANDROGEL [Suspect]
     Indication: BLOOD TESTOSTERONE DECREASED
     Dosage: 2 PUMPS DAILY
     Route: 061
     Dates: start: 201309
  2. TESTOSTERONE [Concomitant]
     Indication: BLOOD TESTOSTERONE DECREASED
  3. AMITRIPTYLINE [Concomitant]
     Indication: PRODUCT USED FOR UNKNOWN INDICATION
  4. ELAVIL [Concomitant]
     Indication: SLEEP DISORDER
  5. ROBAXIN [Concomitant]
     Indication: MYOSITIS
  6. XANAX [Concomitant]
     Indication: ANXIETY
  7. EFFEXOR [Concomitant]
     Indication: HOT FLUSH
     Dates: start: 20140224
  8. WELLBUTRIN [Concomitant]
     Indication: SMOKING CESSATION THERAPY
     Dosage: TOOK 15 PILLS
     Dates: start: 2013, end: 2013
  9. BUPRENORPHINE [Concomitant]
     Indication: PRODUCT USED FOR UNKNOWN INDICATION

REACTIONS (12)
  - Abdominal pain [Recovered/Resolved]
  - Gallbladder perforation [Recovered/Resolved]
  - Appendicitis [Recovered/Resolved]
  - Cholecystitis [Recovered/Resolved]
  - Abdominal infection [Recovered/Resolved]
  - Unevaluable event [Recovered/Resolved]
  - Musculoskeletal pain [Recovered/Resolved]
  - Pain in extremity [Recovered/Resolved]
  - Abdominal pain [Recovered/Resolved]
  - Sepsis [Recovered/Resolved]
  - Abdominal pain [Recovered/Resolved]
  - Hyperhidrosis [Not Recovered/Not Resolved]
